FAERS Safety Report 7287621-6 (Version None)
Quarter: 2011Q1

REPORT INFORMATION
  Report Type: 
  Country: None (occurrence: None)
  Receive Date: 20110211
  Receipt Date: 20110204
  Transmission Date: 20110831
  Serious: Yes (Other)
  Sender: FDA-Public Use
  Company Number: US-US-EMD SERONO, INC.-7040661

PATIENT
  Sex: Female

DRUGS (3)
  1. REBIF [Suspect]
     Route: 058
  2. REBIF [Suspect]
     Indication: PRODUCT USED FOR UNKNOWN INDICATION
     Route: 058
     Dates: start: 20090805
  3. REBIF [Suspect]
     Route: 058

REACTIONS (9)
  - HYPERTENSION [None]
  - DIZZINESS [None]
  - FALL [None]
  - POLLAKIURIA [None]
  - VITAMIN D DECREASED [None]
  - MALIGNANT MELANOMA [None]
  - JOINT EFFUSION [None]
  - HEADACHE [None]
  - CONTUSION [None]
